FAERS Safety Report 9505894 (Version 1)
Quarter: 2013Q1

REPORT INFORMATION
  Report Type: Spontaneous
  Country: US (occurrence: None)
  Receive Date: 20130219
  Receipt Date: 20130219
  Transmission Date: 20140127
  Serious: Yes (Other)
  Sender: FDA-Public Use
  Company Number: USA/USA/12/0026995

PATIENT
  Age: 49 Year
  Sex: Female

DRUGS (4)
  1. MINOCYCLINE HYDROCHLORIDE [Suspect]
     Dosage: 1 IN 1 D
  2. RIFAMPIN [Suspect]
  3. DAPSONE [Suspect]
  4. PREDNISONE (PREDNISONE) [Suspect]

REACTIONS (1)
  - Skin hyperpigmentation [None]
